FAERS Safety Report 5492432-8 (Version None)
Quarter: 2007Q4

REPORT INFORMATION
  Report Type: 
  Country: None (occurrence: None)
  Receive Date: 20071015
  Receipt Date: 20070727
  Transmission Date: 20080405
  Serious: No
  Sender: FDA-Public Use
  Company Number: 2007SP002682

PATIENT
  Age: 47 Year
  Sex: Female
  Weight: 113.3993 kg

DRUGS (5)
  1. LUNESTA [Suspect]
     Indication: INSOMNIA
     Dosage: 3 MG PRN ORAL
     Route: 048
     Dates: start: 20061013, end: 20070708
  2. LEVOXYL [Concomitant]
  3. ACIPHEX [Concomitant]
  4. SINGULAIR [Concomitant]
  5. LEXAPRO [Concomitant]

REACTIONS (1)
  - DYSGEUSIA [None]
